FAERS Safety Report 7287378-9 (Version None)
Quarter: 2011Q1

REPORT INFORMATION
  Report Type: 
  Country: None (occurrence: None)
  Receive Date: 20110208
  Receipt Date: 20110208
  Transmission Date: 20110831
  Serious: Yes (Other)
  Sender: FDA-Public Use
  Company Number: None

PATIENT
  Sex: Male
  Weight: 79.5 kg

DRUGS (3)
  1. PREDNISONE [Suspect]
     Indication: STEROID THERAPY
     Dosage: 60 MG Q D PO
     Route: 048
     Dates: start: 20110201
  2. LEVAQUIN [Suspect]
     Indication: INFLUENZA
     Dosage: 500 MG Q 48 HRS PO
     Route: 048
     Dates: start: 20110130
  3. LEVAQUIN [Suspect]
     Indication: BRONCHITIS
     Dosage: 500 MG Q 48 HRS PO
     Route: 048
     Dates: start: 20110130

REACTIONS (1)
  - TENDONITIS [None]
